FAERS Safety Report 7274723 (Version 3)
Quarter: 2012Q4

REPORT INFORMATION
  Report Type: 
  Country: JP (occurrence: JP)
  Receive Date: 20100209
  Receipt Date: 20121221
  Transmission Date: 20130627
  Serious: Yes (Hospitalization)
  Sender: FDA-Public Use
  Company Number: JP-AMGEN-US390983

PATIENT
  Age: 80 Year
  Sex: Female
  Weight: 44 kg

DRUGS (12)
  1. ENBREL [Suspect]
     Indication: RHEUMATOID ARTHRITIS
     Dosage: 25 mg, weekly
     Dates: start: 200901
  2. ENBREL [Suspect]
     Dosage: 25 mg, 2 times/wk
     Route: 058
     Dates: start: 20090612, end: 20100118
  3. ENBREL [Suspect]
     Dosage: 50 mg, qwk
     Dates: start: 200906
  4. ENBREL [Suspect]
     Dosage: 25 mg, weekly
     Dates: start: 20090417, end: 20090605
  5. ENBREL [Suspect]
     Dosage: UNK
     Dates: start: 201003
  6. METHOTREXATE [Suspect]
     Dosage: 2 mg, qd
     Route: 048
     Dates: start: 20081031, end: 20100118
  7. METHOTREXATE [Suspect]
     Dosage: 4 mg, qwk
     Route: 048
     Dates: start: 20081031, end: 20100118
  8. METHOTREXATE [Suspect]
     Dosage: 6 mg, qwk
     Dates: start: 200810
  9. PREDNISOLONE [Suspect]
     Dosage: 5 mg, daily
     Dates: start: 200810
  10. PREDNISOLONE [Suspect]
     Dosage: 5 mg, qd
     Route: 048
     Dates: start: 20090417, end: 20090927
  11. FOLIAMIN [Concomitant]
     Dosage: 5 mg, qwk
     Route: 048
     Dates: start: 20090417, end: 20100118
  12. ACTONEL [Concomitant]
     Dosage: 17.5 mg, qwk
     Dates: start: 20090417

REACTIONS (2)
  - Pleurisy [Recovered/Resolved]
  - Staphylococcal infection [Recovered/Resolved]
